FAERS Safety Report 9403541 (Version 1)
Quarter: 2013Q3

REPORT INFORMATION
  Report Type: Spontaneous
  Country: NZ (occurrence: NZ)
  Receive Date: 20130716
  Receipt Date: 20130716
  Transmission Date: 20140515
  Serious: Yes (Disabling)
  Sender: FDA-Public Use
  Company Number: NZ-PFIZER INC-2013181253

PATIENT
  Age: 49 Year
  Sex: Male

DRUGS (4)
  1. ZARATOR [Suspect]
     Indication: HYPERLIPIDAEMIA
     Dosage: 10 MG, DAILY
     Route: 048
     Dates: start: 20130529
  2. METFORMIN [Concomitant]
     Indication: DIABETES MELLITUS
     Dosage: 500 MG, 2X/DAY
     Route: 048
  3. AMOXICILLIN [Concomitant]
     Dosage: 500 MG, 3X/DAY
     Route: 048
     Dates: start: 20130529
  4. CILAZAPRIL [Concomitant]
     Indication: HYPERTENSION
     Dosage: 500 MG, DAILY
     Route: 048

REACTIONS (1)
  - Pain [Unknown]
